FAERS Safety Report 22841301 (Version 3)
Quarter: 2023Q4

REPORT INFORMATION
  Report Type: Report from Study
  Country: GT (occurrence: GT)
  Receive Date: 20230820
  Receipt Date: 20231012
  Transmission Date: 20240110
  Serious: Yes (Hospitalization)
  Sender: FDA-Public Use
  Company Number: GT-002147023-NVSC2023GT149114

PATIENT
  Age: 59 Year
  Sex: Female

DRUGS (4)
  1. KISQALI [Suspect]
     Active Substance: RIBOCICLIB
     Indication: Breast cancer
     Dosage: 600 MG, QD
     Route: 048
     Dates: start: 202305, end: 20231007
  2. KISQALI [Suspect]
     Active Substance: RIBOCICLIB
     Dosage: 600 MG, QD
     Route: 048
     Dates: start: 20230710
  3. KISQALI [Suspect]
     Active Substance: RIBOCICLIB
     Dosage: 600 MG,QD
     Route: 048
     Dates: start: 20231007
  4. KISQALI [Suspect]
     Active Substance: RIBOCICLIB
     Dosage: UNK
     Route: 065

REACTIONS (5)
  - Pleural effusion [Unknown]
  - Fatigue [Unknown]
  - Discomfort [Unknown]
  - Tumour marker increased [Unknown]
  - Nausea [Unknown]

NARRATIVE: CASE EVENT DATE: 20230625
